FAERS Safety Report 17263042 (Version 1)
Quarter: 2020Q1

REPORT INFORMATION
  Report Type: Spontaneous
  Country: US (occurrence: US)
  Receive Date: 20200113
  Receipt Date: 20200113
  Transmission Date: 20200409
  Serious: Yes (Death)
  Sender: FDA-Public Use
  Company Number: US-CURIUM-198900023

PATIENT
  Sex: Male

DRUGS (2)
  1. TECHNESCAN PYP [Suspect]
     Active Substance: TECHNETIUM TC-99M PYROPHOSPHATE
     Indication: IMAGING PROCEDURE
     Route: 065
  2. SODIUM PERTECHNETATE TC 99M [Suspect]
     Active Substance: TECHNETIUM TC-99M SODIUM PERTECHNETATE
     Indication: IMAGING PROCEDURE
     Route: 065

REACTIONS (1)
  - Cardiac arrest [Fatal]
